FAERS Safety Report 5846217-0 (Version None)
Quarter: 2008Q3

REPORT INFORMATION
  Report Type: 
  Country: None (occurrence: None)
  Receive Date: 20080813
  Receipt Date: 20080506
  Transmission Date: 20090109
  Serious: Yes (Life-Threatening, Hospitalization)
  Sender: FDA-Public Use
  Company Number: ADE2008-0183

PATIENT
  Age: 55 Year
  Sex: Female

DRUGS (3)
  1. FLUOXETINE [Suspect]
     Indication: SCHIZOPHRENIA
     Dosage: 20 MG,
     Dates: start: 20080201
  2. RISPERIDONE [Suspect]
     Dosage: 2MG, TWICE DAILY; PO
     Route: 048
     Dates: start: 20080201
  3. DEPIXOL TABLETS [Concomitant]

REACTIONS (6)
  - AGITATION [None]
  - BLOOD POTASSIUM DECREASED [None]
  - BRAIN OEDEMA [None]
  - CONVULSION [None]
  - FALL [None]
  - HYPONATRAEMIA [None]
